FAERS Safety Report 22070272 (Version 21)
Quarter: 2025Q3

REPORT INFORMATION
  Report Type: Report from Study
  Country: CO (occurrence: CO)
  Receive Date: 20230307
  Receipt Date: 20250804
  Transmission Date: 20251021
  Serious: Yes (Hospitalization, Other)
  Sender: TAKEDA
  Company Number: CO-TAKEDA-CO202005012

PATIENT
  Age: 24 Year
  Sex: Female
  Weight: 77 kg

DRUGS (6)
  1. ICATIBANT [Suspect]
     Active Substance: ICATIBANT ACETATE
     Indication: Hereditary angioedema
  2. ICATIBANT [Suspect]
     Active Substance: ICATIBANT ACETATE
     Dosage: 30 MILLIGRAM, TID
  3. ICATIBANT [Suspect]
     Active Substance: ICATIBANT ACETATE
  4. TAKHZYRO [Suspect]
     Active Substance: LANADELUMAB-FLYO
     Indication: Hereditary angioedema
     Dosage: 300 MILLIGRAM, Q2WEEKS
  5. TAKHZYRO [Suspect]
     Active Substance: LANADELUMAB-FLYO
     Dosage: 300 MILLIGRAM, Q3WEEKS
  6. TAKHZYRO [Suspect]
     Active Substance: LANADELUMAB-FLYO
     Dosage: 300 MILLIGRAM, Q3WEEKS
     Dates: start: 20240920

REACTIONS (21)
  - Ectopic pregnancy [Recovered/Resolved]
  - Pneumonia [Recovering/Resolving]
  - Product use issue [Unknown]
  - Weight increased [Unknown]
  - Insurance issue [Unknown]
  - Treatment noncompliance [Unknown]
  - Malaise [Recovering/Resolving]
  - Abdominal pain lower [Recovered/Resolved]
  - Abdominal pain upper [Unknown]
  - Influenza [Not Recovered/Not Resolved]
  - Pruritus [Recovered/Resolved]
  - Mobility decreased [Recovered/Resolved]
  - Weight decreased [Unknown]
  - Limb injury [Recovered/Resolved]
  - Oropharyngeal pain [Recovering/Resolving]
  - Product prescribing issue [Unknown]
  - Vomiting [Recovered/Resolved]
  - Hereditary angioedema [Recovered/Resolved]
  - Diarrhoea [Recovering/Resolving]
  - Urinary tract infection [Recovering/Resolving]
  - Headache [Recovering/Resolving]

NARRATIVE: CASE EVENT DATE: 20200305
